FAERS Safety Report 6537021-9 (Version None)
Quarter: 2010Q1

REPORT INFORMATION
  Report Type: 
  Country: None (occurrence: None)
  Receive Date: 20100108
  Receipt Date: 20091228
  Transmission Date: 20100710
  Serious: Yes (Other)
  Sender: FDA-Public Use
  Company Number: 234537J09USA

PATIENT

DRUGS (6)
  1. REBIF [Suspect]
     Indication: MULTIPLE SCLEROSIS
     Dosage: 44 MCG, 3 IN 1 WEEKS, SUBCUTANEOUS
     Route: 058
     Dates: start: 20090916
  2. FUROSEMIDE [Suspect]
  3. HYDROCHLOROTHIAZIDE [Concomitant]
  4. EFFEXOR [Concomitant]
  5. GABAPENTIN [Concomitant]
  6. IBUPROFEN [Concomitant]

REACTIONS (7)
  - CHROMATURIA [None]
  - DIZZINESS [None]
  - FATIGUE [None]
  - FLUID RETENTION [None]
  - MENORRHAGIA [None]
  - MENSTRUATION IRREGULAR [None]
  - PAIN [None]
